FAERS Safety Report 17053268 (Version 1)
Quarter: 2019Q4

REPORT INFORMATION
  Report Type: Spontaneous
  Country: US (occurrence: US)
  Receive Date: 20191120
  Receipt Date: 20191120
  Transmission Date: 20200122
  Serious: No
  Sender: FDA-Public Use
  Company Number: US-PFIZER INC-2019500293

PATIENT
  Age: 77 Year
  Sex: Male

DRUGS (3)
  1. MARIJUANA [Concomitant]
     Active Substance: CANNABIS SATIVA SUBSP. INDICA TOP
     Dosage: 3-4 TIMES A WEEK
     Dates: start: 2008
  2. EPLERENONE. [Concomitant]
     Active Substance: EPLERENONE
     Indication: ATRIAL FIBRILLATION
     Dosage: UNK
     Dates: start: 201907, end: 201908
  3. SPIRONOLACTONE. [Suspect]
     Active Substance: SPIRONOLACTONE
     Dosage: UNK

REACTIONS (3)
  - Gynaecomastia [Not Recovered/Not Resolved]
  - Breast pain [Unknown]
  - Nipple pain [Not Recovered/Not Resolved]
